FAERS Safety Report 7166802 (Version 3)
Quarter: 2017Q1

REPORT INFORMATION
  Report Type: Spontaneous
  Country: JP (occurrence: JP)
  Receive Date: 20091104
  Receipt Date: 20170213
  Transmission Date: 20170429
  Serious: Yes (Death, Other)
  Sender: FDA-Public Use
  Company Number: JP-BRISTOL-MYERS SQUIBB COMPANY-14833537

PATIENT
  Age: 55 Year
  Sex: Male
  Weight: 74 kg

DRUGS (10)
  1. AMBENONIUM CHLORIDE [Concomitant]
     Active Substance: AMBENONIUM CHLORIDE
     Indication: MYASTHENIA GRAVIS
     Dosage: TAB  10X2MG/DAY:FEB95
     Route: 048
     Dates: start: 199501
  2. HERBAL EXTRACT NOS [Concomitant]
     Active Substance: HERBALS
     Indication: BENIGN PROSTATIC HYPERPLASIA
     Dosage: 1 DF = 3 TABS  3X3 TABS/DAY  FORM:TABS
     Route: 048
     Dates: start: 199502
  3. TACROLIMUS. [Concomitant]
     Active Substance: TACROLIMUS
     Indication: MYASTHENIA GRAVIS
     Dosage: TACROLIMUS HYDRATE  ALSO TAKEN JAN05
     Route: 048
     Dates: start: 199502
  4. BRIPLATIN [Suspect]
     Active Substance: CISPLATIN
     Indication: THYMOMA
     Dosage: UNK
     Route: 065
     Dates: start: 20060303, end: 20060303
  5. SULFAMETHOXAZOLE W/TRIMETHOPRIM [Concomitant]
     Active Substance: SULFAMETHOXAZOLE\TRIMETHOPRIM
     Indication: PRODUCT USED FOR UNKNOWN INDICATION
     Dosage: TAB  1 DF = 4TABLET  4TABLET/DAY TWICE WEEKLY
     Route: 048
     Dates: start: 199502
  6. TAXOL [Suspect]
     Active Substance: PACLITAXEL
     Indication: THYMOMA
     Dosage: 120 MG, QWK
     Route: 041
     Dates: start: 20060511, end: 20060605
  7. PREDNISOLONE. [Concomitant]
     Active Substance: PREDNISOLONE
     Indication: MYASTHENIA GRAVIS
     Dosage: 30 MG, QOD
     Route: 048
     Dates: start: 199502
  8. FAMOTIDINE. [Concomitant]
     Active Substance: FAMOTIDINE
     Indication: PRODUCT USED FOR UNKNOWN INDICATION
     Dosage: 40 MG, QD
     Route: 048
     Dates: start: 199502
  9. PARAPLATIN [Suspect]
     Active Substance: CARBOPLATIN
     Indication: THYMOMA
     Dosage: 100 MG, QWK
     Route: 041
     Dates: start: 20060511, end: 20060605
  10. BROTIZOLAM [Concomitant]
     Active Substance: BROTIZOLAM
     Indication: INSOMNIA
     Dosage: 0.25 MG, QD
     Route: 048
     Dates: start: 199502

REACTIONS (1)
  - Polymyositis [Fatal]

NARRATIVE: CASE EVENT DATE: 20060727
